FAERS Safety Report 18181732 (Version 2)
Quarter: 2021Q3

REPORT INFORMATION
  Report Type: Spontaneous
  Country: US (occurrence: US)
  Receive Date: 20200821
  Receipt Date: 20210712
  Transmission Date: 20211014
  Serious: Yes (Other)
  Sender: FDA-Public Use
  Company Number: US-MYLANLABS-2020M1072048

PATIENT
  Age: 74 Year
  Sex: Male
  Weight: 95.2 kg

DRUGS (7)
  1. VALSARTAN AND HYDROCHLOROTHIAZIDE TABLETS, USP [Suspect]
     Active Substance: HYDROCHLOROTHIAZIDE\VALSARTAN
     Indication: HYPERTENSION
     Dosage: UNK
     Dates: start: 20140327, end: 20170604
  2. PRADAXA [Concomitant]
     Active Substance: DABIGATRAN ETEXILATE MESYLATE
     Indication: HYPERTENSION
     Dosage: 150 MILLIGRAM, QD
     Dates: start: 2010, end: 20190219
  3. PEPTO?BISMOL [Concomitant]
     Active Substance: BISMUTH SUBSALICYLATE
     Indication: ABDOMINAL DISCOMFORT
     Dosage: 1 DOSAGE FORM, PRN
     Dates: end: 20190219
  4. CARVEDILOL. [Concomitant]
     Active Substance: CARVEDILOL
     Indication: HYPERTENSION
     Dosage: 12.5 MILLIGRAM, QD
     Dates: start: 1999, end: 20190219
  5. PANTOPRAZOLE [Concomitant]
     Active Substance: PANTOPRAZOLE
     Indication: GASTROOESOPHAGEAL REFLUX DISEASE
     Dosage: 40 MILLIGRAM, QD
     Dates: start: 2014
  6. TYLENOL [Concomitant]
     Active Substance: ACETAMINOPHEN
     Indication: HEADACHE
     Dosage: 200 MILLIGRAM, PRN
     Dates: end: 20190219
  7. GLIMEPIRIDE. [Concomitant]
     Active Substance: GLIMEPIRIDE
     Indication: DIABETES MELLITUS
     Dosage: 1 MILLIGRAM, QD
     Dates: start: 2010

REACTIONS (1)
  - Hepatic cancer stage III [Unknown]

NARRATIVE: CASE EVENT DATE: 20180601
